FAERS Safety Report 7726967-1 (Version None)
Quarter: 2011Q3

REPORT INFORMATION
  Report Type: 
  Country: None (occurrence: None)
  Receive Date: 20110902
  Receipt Date: 20110830
  Transmission Date: 20111222
  Serious: Yes (Hospitalization)
  Sender: FDA-Public Use
  Company Number: FR-PFIZER INC-2011201474

PATIENT
  Age: 83 Year
  Sex: Male

DRUGS (11)
  1. AMLODIPINE BESYLATE [Suspect]
     Dosage: 5 MG, 2X/DAY
     Route: 048
     Dates: end: 20110630
  2. RAMIPRIL [Suspect]
     Dosage: 2.5 MG, 2X/DAY
     Route: 048
     Dates: end: 20110630
  3. ATARAX [Concomitant]
     Dosage: 2 DF, AS NEEDED
  4. VALSARTAN  AND HYDROCHLOROTHIAZIDE [Suspect]
     Dosage: 1 DF (12.5 MG/160 MG), 1X/DAY
     Route: 048
     Dates: start: 20110201, end: 20110719
  5. PLAVIX [Concomitant]
     Dosage: 1 DF, 1X/DAY
  6. NITROGLYCERIN [Suspect]
     Dosage: 1 DF (5 MG/24 HOURS), 1X/DAY
     Route: 062
     Dates: end: 20110702
  7. PRAVASTATIN [Suspect]
     Dosage: 40 MG, 1X/DAY
     Route: 048
     Dates: end: 20110702
  8. ASPIRIN [Concomitant]
     Dosage: 1 DF, 1X/DAY
  9. NEXIUM [Concomitant]
     Dosage: 1 DF, 1X/DAY
  10. MOVIPREP [Concomitant]
     Dosage: AS NEEDED (UP TO 3 DOSE FORMS PER DAY)
  11. METOPROLOL TARTRATE [Concomitant]
     Dosage: 0.25 DF, 2X/DAY

REACTIONS (4)
  - ECZEMA [None]
  - ACUTE PULMONARY OEDEMA [None]
  - STAPHYLOCOCCAL BACTERAEMIA [None]
  - ENDOCARDITIS BACTERIAL [None]
